FAERS Safety Report 23838003 (Version 1)
Quarter: 2024Q2

REPORT INFORMATION
  Report Type: Spontaneous
  Country: CA (occurrence: CA)
  Receive Date: 20240509
  Receipt Date: 20240509
  Transmission Date: 20240716
  Serious: Yes (Other)
  Sender: FDA-Public Use
  Company Number: CA-TEVA-VS-3196429

PATIENT
  Age: 54 Year
  Sex: Female

DRUGS (2)
  1. CAPECITABINE [Suspect]
     Active Substance: CAPECITABINE
     Indication: Breast cancer metastatic
     Route: 065
  2. PACLITAXEL [Suspect]
     Active Substance: PACLITAXEL
     Indication: Breast cancer metastatic
     Dosage: DOSE FORM: LIQUID INTRAVENOUS
     Route: 042

REACTIONS (5)
  - Breast cancer metastatic [Unknown]
  - Neuropathy peripheral [Unknown]
  - Fatigue [Unknown]
  - Drug intolerance [Unknown]
  - Treatment failure [Unknown]
